FAERS Safety Report 5456136-X (Version None)
Quarter: 2007Q3

REPORT INFORMATION
  Report Type: 
  Country: None (occurrence: None)
  Receive Date: 20070918
  Receipt Date: 20070905
  Transmission Date: 20080115
  Serious: Yes (Hospitalization)
  Sender: FDA-Public Use
  Company Number: US-JNJFOC-20070705403

PATIENT
  Sex: Female
  Weight: 68.49 kg

DRUGS (2)
  1. TRAMADOL HYDROCHLORIDE ER [Suspect]
     Indication: OSTEOARTHRITIS
     Route: 048
     Dates: start: 20061228, end: 20070709
  2. MELOXICAM [Suspect]
     Indication: OSTEOARTHRITIS
     Route: 048

REACTIONS (2)
  - BLADDER PROLAPSE [None]
  - HAEMATOCRIT DECREASED [None]
